FAERS Safety Report 4705092-8 (Version None)
Quarter: 2005Q3

REPORT INFORMATION
  Report Type: 
  Country: None (occurrence: None)
  Receive Date: 20050701
  Receipt Date: 20050607
  Transmission Date: 20060218
  Serious: Yes (Other)
  Sender: FDA-Public Use
  Company Number: PHBS2005TR08169

PATIENT
  Age: 34 Year
  Sex: Male

DRUGS (1)
  1. SANDIMMUNE [Suspect]
     Indication: MEDICATION ERROR
     Dosage: 2 AMPOULES OF 50 MG
     Route: 058

REACTIONS (3)
  - GASTROINTESTINAL HAEMORRHAGE [None]
  - MEDICATION ERROR [None]
  - WRONG DRUG ADMINISTERED [None]
